FAERS Safety Report 6942513-4 (Version None)
Quarter: 2010Q3

REPORT INFORMATION
  Report Type: 
  Country: None (occurrence: None)
  Receive Date: 20100826
  Receipt Date: 20100820
  Transmission Date: 20110219
  Serious: Yes (Death, Other)
  Sender: FDA-Public Use
  Company Number: MX-ELI_LILLY_AND_COMPANY-MX201008006191

PATIENT
  Sex: Male

DRUGS (1)
  1. HUMALOG MIX 75/25 [Suspect]
     Route: 058
     Dates: start: 20100302

REACTIONS (1)
  - MYOCARDIAL INFARCTION [None]
